FAERS Safety Report 9027794 (Version 1)
Quarter: 2013Q1

REPORT INFORMATION
  Report Type: Report from Study
  Country: CA (occurrence: CA)
  Receive Date: 20130124
  Receipt Date: 20130124
  Transmission Date: 20140127
  Serious: Yes (Other)
  Sender: FDA-Public Use
  Company Number: CA-JNJFOC-20130107183

PATIENT
  Sex: Female
  Weight: 64 kg

DRUGS (23)
  1. REMICADE [Suspect]
     Indication: RHEUMATOID ARTHRITIS
     Route: 042
     Dates: start: 200912
  2. METHOTREXATE SODIUM [Concomitant]
     Dosage: DOSE: ALSO PROVIDED AS 4 ML
     Route: 058
     Dates: start: 20100607
  3. APO PREDNISONE [Concomitant]
     Route: 065
  4. APO PREDNISONE [Concomitant]
     Dosage: 5 AND 10 MG WAS TAKEN ALTERNATELY IN THE MORNING
     Route: 065
  5. EFFEXOR [Concomitant]
     Route: 065
     Dates: start: 201210
  6. EFFEXOR [Concomitant]
     Dosage: TAKEN IN THE MORNING
     Route: 065
  7. NOVO-TRIAMZIDE [Concomitant]
     Indication: BLOOD PRESSURE
     Dosage: TAKEN IN THE MORNING
     Route: 065
     Dates: start: 200906
  8. NOVO-TRIAMZIDE [Concomitant]
     Indication: BLOOD PRESSURE
     Route: 065
     Dates: start: 200906
  9. NAPROSYN [Concomitant]
     Dosage: DOSAGE: UP TO 3 TIMES DAILY
     Route: 065
  10. NAPRELAN [Concomitant]
     Dosage: UP TO 2 TIMES DAILY
     Route: 065
     Dates: start: 201001
  11. PREMARIN VAGINAL CREAM [Concomitant]
     Dosage: IN THE EVENINGS
     Route: 065
     Dates: start: 201007
  12. LEUCOVORIN [Concomitant]
     Dosage: TIMING: 24 HOURS AFTER METHOTREXATE
     Route: 065
  13. PARIET [Concomitant]
     Dosage: FREQUENCY: DAILY AS NECESSARY
     Route: 065
     Dates: start: 200901
  14. PROLIA [Concomitant]
     Indication: BONE DENSITY ABNORMAL
     Route: 065
     Dates: start: 2011
  15. REACTINE [Concomitant]
     Indication: SEASONAL ALLERGY
     Dosage: FREQUENCY: DAILY AS NECESSARY
     Route: 065
  16. NASONEX [Concomitant]
     Indication: SEASONAL ALLERGY
     Route: 065
  17. CALCIUM [Concomitant]
     Route: 065
  18. VITAMIN C [Concomitant]
     Route: 065
  19. VITAMIN D [Concomitant]
     Route: 065
  20. VITAMIN D [Concomitant]
     Route: 065
     Dates: start: 201211
  21. MAGNESIUM [Concomitant]
     Route: 065
  22. ASPIRIN [Concomitant]
     Dosage: IN THE MORNINGS ON ALTERNATE DAYS
     Route: 065
  23. ZADITOR NOS [Concomitant]
     Indication: SEASONAL ALLERGY
     Dosage: MORNING AND EVENING DURING SEASON
     Route: 047

REACTIONS (1)
  - Rheumatoid lung [Not Recovered/Not Resolved]
